FAERS Safety Report 16249934 (Version 1)
Quarter: 2019Q2

REPORT INFORMATION
  Report Type: Spontaneous
  Country: US (occurrence: US)
  Receive Date: 20190429
  Receipt Date: 20190429
  Transmission Date: 20190711
  Serious: No
  Sender: FDA-Public Use
  Company Number: US-TEVA-2019-US-1042430

PATIENT
  Sex: Female

DRUGS (4)
  1. CLONAZEPAM ACTAVIS [Suspect]
     Active Substance: CLONAZEPAM
     Indication: PANIC ATTACK
  2. CLONAZEPAM ACTAVIS [Suspect]
     Active Substance: CLONAZEPAM
     Indication: ANXIETY
     Dates: start: 20190319
  3. CLONAZEPAM ACTAVIS [Suspect]
     Active Substance: CLONAZEPAM
     Indication: MUSCLE SPASMS
  4. ATENOLOL ZYDUS [Concomitant]
     Active Substance: ATENOLOL
     Dosage: DOSE NCREASED TO 75MG

REACTIONS (5)
  - Product use in unapproved indication [Unknown]
  - Drug ineffective [Unknown]
  - Hypertension [Unknown]
  - Formication [Unknown]
  - Product substitution issue [Unknown]
